FAERS Safety Report 6600678-8 (Version None)
Quarter: 2010Q1

REPORT INFORMATION
  Report Type: 
  Country: None (occurrence: None)
  Receive Date: 20100223
  Receipt Date: 20100223
  Transmission Date: 20100710
  Serious: Yes (Other)
  Sender: FDA-Public Use
  Company Number: None

PATIENT
  Age: 33 Year
  Sex: Female
  Weight: 54.4316 kg

DRUGS (1)
  1. CIPROFLOXACIN 500MG [Suspect]
     Indication: SINUSITIS
     Dosage: 1 TWICE DAILLY PO
     Route: 048
     Dates: start: 20100216, end: 20100220

REACTIONS (1)
  - VOMITING [None]
